FAERS Safety Report 5307027-6 (Version None)
Quarter: 2007Q2

REPORT INFORMATION
  Report Type: 
  Country: None (occurrence: None)
  Receive Date: 20070425
  Receipt Date: 20070413
  Transmission Date: 20071010
  Serious: Yes (Death, Hospitalization)
  Sender: FDA-Public Use
  Company Number: FI-ROCHE-473248

PATIENT
  Age: 76 Year
  Sex: Female
  Weight: 80 kg

DRUGS (10)
  1. XELODA [Suspect]
     Dosage: FOR 14 DAYS
     Route: 048
     Dates: start: 20061030, end: 20061110
  2. TREXAN [Concomitant]
     Indication: RHEUMATOID ARTHRITIS
     Route: 048
     Dates: end: 20061030
  3. PREDNISONE [Concomitant]
     Indication: RHEUMATOID ARTHRITIS
     Route: 048
  4. OXIKLORIN [Concomitant]
     Indication: RHEUMATOID ARTHRITIS
     Dosage: FREQUENCY REPORTED AS ^X 1^
     Route: 048
  5. 1 CONCOMITANT DRUG [Concomitant]
     Dosage: DRUG REPORTED AS ^PANACOD/PANADOL (PARACETAMOL+CODEINE/PARACETAMOL)^
     Route: 048
  6. LIPCUT [Concomitant]
     Dosage: FREQUENCY  =  ^X1^
  7. NEXIUM [Concomitant]
     Dosage: FREQUENCY  =  ^X1^
  8. KALCIPOS-D [Concomitant]
  9. FOLVITE [Concomitant]
  10. METOPRAM [Concomitant]

REACTIONS (16)
  - BACTERIAL SEPSIS [None]
  - C-REACTIVE PROTEIN INCREASED [None]
  - CHEST PAIN [None]
  - CORONARY ARTERY THROMBOSIS [None]
  - DEEP VEIN THROMBOSIS [None]
  - DEPRESSED LEVEL OF CONSCIOUSNESS [None]
  - DIARRHOEA [None]
  - HAEMATOCHEZIA [None]
  - LEUKOPENIA [None]
  - MULTI-ORGAN FAILURE [None]
  - NEUTROPENIA [None]
  - OEDEMA [None]
  - PYREXIA [None]
  - RASH [None]
  - STOMATITIS [None]
  - VOMITING [None]
